FAERS Safety Report 23390800 (Version 2)
Quarter: 2024Q1

REPORT INFORMATION
  Report Type: Report from Study
  Country: US (occurrence: US)
  Receive Date: 20240111
  Receipt Date: 20240111
  Transmission Date: 20240410
  Serious: No
  Sender: FDA-Public Use
  Company Number: US-ABBVIE-5576664

PATIENT
  Sex: Female

DRUGS (1)
  1. QULIPTA [Suspect]
     Active Substance: ATOGEPANT
     Indication: Product used for unknown indication
     Route: 048
     Dates: start: 20231115

REACTIONS (3)
  - Alopecia [Not Recovered/Not Resolved]
  - COVID-19 [Not Recovered/Not Resolved]
  - Thyroid disorder [Not Recovered/Not Resolved]
